FAERS Safety Report 14264974 (Version 1)
Quarter: 2017Q4

REPORT INFORMATION
  Report Type: Spontaneous
  Country: US (occurrence: US)
  Receive Date: 20171208
  Receipt Date: 20171208
  Transmission Date: 20180321
  Serious: Yes (Life-Threatening)
  Sender: FDA-Public Use
  Company Number: US-FRESENIUS KABI-FK201710622

PATIENT
  Age: 55 Year
  Sex: Female

DRUGS (3)
  1. HYDROMORPHONE HCL [Suspect]
     Active Substance: HYDROMORPHONE HYDROCHLORIDE
     Indication: ANALGESIC THERAPY
     Route: 037
  2. BUPIVACAINE (MANUFACTURER UNKNOWN) [Suspect]
     Active Substance: BUPIVACAINE
     Indication: ANALGESIC THERAPY
     Route: 037
  3. CLONIDINE HYDROCHLORIDE INJECTION (MANUFACTURER UNKNOWN) [Suspect]
     Active Substance: CLONIDINE HYDROCHLORIDE
     Indication: ANALGESIC THERAPY
     Route: 037

REACTIONS (3)
  - Hypertensive encephalopathy [Recovered/Resolved]
  - Medication error [Recovered/Resolved]
  - Accidental overdose [Recovered/Resolved]
